FAERS Safety Report 6996226-3 (Version None)
Quarter: 2010Q3

REPORT INFORMATION
  Report Type: 
  Country: None (occurrence: None)
  Receive Date: 20100918
  Receipt Date: 20090213
  Transmission Date: 20110219
  Serious: No
  Sender: FDA-Public Use
  Company Number: US-WYE-H07691609

PATIENT
  Age: 81 Year
  Sex: Female
  Weight: 63.56 kg

DRUGS (5)
  1. ALAVERT [Suspect]
     Indication: UPPER-AIRWAY COUGH SYNDROME
     Route: 048
     Dates: start: 20090109, end: 20090109
  2. XALATAN [Concomitant]
  3. ALPHAGAN [Concomitant]
  4. CENTRUM [Concomitant]
  5. TRUSOPT [Concomitant]

REACTIONS (4)
  - DRUG INEFFECTIVE [None]
  - EYE PRURITUS [None]
  - RHINORRHOEA [None]
  - SNEEZING [None]
